FAERS Safety Report 21607091 (Version 1)
Quarter: 2022Q4

REPORT INFORMATION
  Report Type: Report from Study
  Country: US (occurrence: US)
  Receive Date: 20221117
  Receipt Date: 20221117
  Transmission Date: 20230113
  Serious: No
  Sender: FDA-Public Use
  Company Number: US-ABBVIE-21K-163-3966806-00

PATIENT
  Sex: Female

DRUGS (7)
  1. IBRUTINIB [Suspect]
     Active Substance: IBRUTINIB
     Indication: Chronic lymphocytic leukaemia
     Route: 048
     Dates: start: 20180915
  2. IBRUTINIB [Suspect]
     Active Substance: IBRUTINIB
     Indication: Chronic lymphocytic leukaemia
     Route: 048
  3. IBRUTINIB [Suspect]
     Active Substance: IBRUTINIB
     Indication: Chronic lymphocytic leukaemia
     Route: 048
     Dates: start: 20150224
  4. IBRUTINIB [Suspect]
     Active Substance: IBRUTINIB
     Indication: Chronic lymphocytic leukaemia
     Route: 048
  5. MODERNA COVID-19 VACCINE [Concomitant]
     Active Substance: ELASOMERAN
     Indication: COVID-19 immunisation
     Dosage: TIME INTERVAL: 1 TOTAL: FIRST DOSE, FREQUENCY: ONE IN ONCE
     Route: 030
     Dates: start: 20210204, end: 20210204
  6. MODERNA COVID-19 VACCINE [Concomitant]
     Active Substance: ELASOMERAN
     Indication: COVID-19 immunisation
     Dosage: TIME INTERVAL: 1 TOTAL: SECOND DOSE, FREQUENCY: ONE IN ONCE
     Route: 030
     Dates: start: 20210304, end: 20210304
  7. MODERNA COVID-19 VACCINE [Concomitant]
     Active Substance: ELASOMERAN
     Indication: COVID-19 immunisation
     Dosage: TIME INTERVAL: TOTAL: BOOSTER DOSE, FREQUENCY: ONE IN ONCE
     Route: 030
     Dates: start: 20210909, end: 20210909

REACTIONS (12)
  - Piriformis syndrome [Unknown]
  - White blood cell count increased [Unknown]
  - Contusion [Unknown]
  - Sciatica [Unknown]
  - Joint range of motion decreased [Unknown]
  - Lymphocyte count increased [Unknown]
  - Contusion [Not Recovered/Not Resolved]
  - Dry eye [Not Recovered/Not Resolved]
  - Urinary tract infection [Unknown]
  - Increased tendency to bruise [Unknown]
  - Hypertension [Unknown]
  - Pruritus [Not Recovered/Not Resolved]

NARRATIVE: CASE EVENT DATE: 20210101
